FAERS Safety Report 17689800 (Version 1)
Quarter: 2020Q2

REPORT INFORMATION
  Report Type: Spontaneous
  Country: CA (occurrence: CA)
  Receive Date: 20200421
  Receipt Date: 20200421
  Transmission Date: 20200714
  Serious: Yes (Other)
  Sender: FDA-Public Use
  Company Number: CA-TEVA-2020-CA-1224776

PATIENT
  Age: 29 Year
  Sex: Female

DRUGS (3)
  1. FENTANYL. [Suspect]
     Active Substance: FENTANYL
     Indication: PAIN
     Route: 065
  2. MORPHINE SULFATE. [Suspect]
     Active Substance: MORPHINE SULFATE
     Indication: PAIN
     Route: 065
  3. KETAMINE [Suspect]
     Active Substance: KETAMINE
     Indication: PAIN
     Route: 065

REACTIONS (3)
  - Delirium [Unknown]
  - Disturbance in attention [Unknown]
  - Drug ineffective [Unknown]
